FAERS Safety Report 6984871-0 (Version None)
Quarter: 2010Q3

REPORT INFORMATION
  Report Type: 
  Country: None (occurrence: None)
  Receive Date: 20100913
  Receipt Date: 20100827
  Transmission Date: 20110219
  Serious: Yes (Other)
  Sender: FDA-Public Use
  Company Number: 2009AP004337

PATIENT
  Age: 61 Year
  Sex: Female

DRUGS (12)
  1. CARBAMAZEPINE [Suspect]
     Indication: EPILEPSY
     Dosage: 200 MG, TAB, PO, QID
     Route: 048
  2. FORZA-10 [Concomitant]
  3. VALPROIC ACID [Concomitant]
  4. DOCUSATE [Concomitant]
  5. FUROSEMIDE [Concomitant]
  6. GABAPENTIN [Concomitant]
  7. LANSOPRAZOLE [Concomitant]
  8. LEVOTHYROXINE SODIUM [Concomitant]
  9. VIGABATRIN [Concomitant]
  10. VALPROATE SEMISODIUM [Concomitant]
  11. PROMETHAZINE HCL [Concomitant]
  12. DIVALPROEX SODIUM [Concomitant]

REACTIONS (2)
  - DRUG INEFFECTIVE [None]
  - MEDICATION RESIDUE [None]
